FAERS Safety Report 11933757 (Version 27)
Quarter: 2020Q4

REPORT INFORMATION
  Report Type: Other
  Country: CA (occurrence: CA)
  Receive Date: 20160121
  Receipt Date: 20201222
  Transmission Date: 20210113
  Serious: Yes (Hospitalization, Other)
  Sender: FDA-Public Use
  Company Number: CA-ROCHE-1434589

PATIENT
  Age: 73 Year
  Sex: Female
  Weight: 79 kg

DRUGS (28)
  1. ACTEMRA [Suspect]
     Active Substance: TOCILIZUMAB
     Indication: VASCULITIS
     Route: 042
     Dates: start: 20140806
  2. ACTEMRA [Suspect]
     Active Substance: TOCILIZUMAB
     Route: 042
     Dates: start: 20160719
  3. ALLOPURINOL. [Concomitant]
     Active Substance: ALLOPURINOL
  4. PANTOPRAZOLE [Concomitant]
     Active Substance: PANTOPRAZOLE
  5. ACTEMRA [Suspect]
     Active Substance: TOCILIZUMAB
     Indication: GIANT CELL ARTERITIS
     Route: 042
     Dates: start: 20140709
  6. ACTEMRA [Suspect]
     Active Substance: TOCILIZUMAB
     Route: 042
     Dates: start: 20160216
  7. ACTEMRA [Suspect]
     Active Substance: TOCILIZUMAB
     Route: 042
     Dates: start: 20141126
  8. ACTEMRA [Suspect]
     Active Substance: TOCILIZUMAB
     Route: 042
     Dates: start: 20150120
  9. ACTEMRA [Suspect]
     Active Substance: TOCILIZUMAB
     Route: 042
     Dates: start: 20141201
  10. ACTEMRA [Suspect]
     Active Substance: TOCILIZUMAB
     Route: 042
     Dates: start: 2020
  11. VITAMIN D3 [Concomitant]
     Active Substance: CHOLECALCIFEROL
  12. OXAZEPAM. [Concomitant]
     Active Substance: OXAZEPAM
  13. ACTEMRA [Suspect]
     Active Substance: TOCILIZUMAB
     Route: 042
     Dates: start: 20151029
  14. ACTEMRA [Suspect]
     Active Substance: TOCILIZUMAB
     Route: 042
     Dates: start: 20151124
  15. ACTEMRA [Suspect]
     Active Substance: TOCILIZUMAB
     Route: 042
     Dates: start: 20140709
  16. ACTEMRA [Suspect]
     Active Substance: TOCILIZUMAB
     Route: 042
     Dates: start: 20141001
  17. ACTEMRA [Suspect]
     Active Substance: TOCILIZUMAB
     Route: 042
     Dates: start: 201809
  18. METFORMIN [Concomitant]
     Active Substance: METFORMIN HYDROCHLORIDE
  19. FOLIC ACID. [Concomitant]
     Active Substance: FOLIC ACID
  20. ALENDRONATE [Concomitant]
     Active Substance: ALENDRONATE SODIUM
  21. ACTEMRA [Suspect]
     Active Substance: TOCILIZUMAB
     Route: 042
     Dates: start: 20141223
  22. GLICLAZIDE [Concomitant]
     Active Substance: GLICLAZIDE
  23. PREDNISONE. [Concomitant]
     Active Substance: PREDNISONE
  24. LEUCOVORIN CALCIUM. [Concomitant]
     Active Substance: LEUCOVORIN CALCIUM
  25. COENZYME Q10 [Concomitant]
     Active Substance: DIETARY SUPPLEMENT\UBIDECARENONE
     Route: 065
  26. TECTA [Concomitant]
     Active Substance: PANTOPRAZOLE MAGNESIUM
  27. METHOTREXATE. [Concomitant]
     Active Substance: METHOTREXATE
  28. ZOPLICONE [Concomitant]
     Active Substance: ZOPICLONE

REACTIONS (43)
  - Musculoskeletal chest pain [Recovered/Resolved]
  - Pain in extremity [Recovered/Resolved]
  - Cataract [Not Recovered/Not Resolved]
  - Product use in unapproved indication [Unknown]
  - Ear pain [Not Recovered/Not Resolved]
  - Lactic acidosis [Unknown]
  - Infusion related reaction [Unknown]
  - Tooth disorder [Unknown]
  - Blood pressure systolic increased [Unknown]
  - Asthenia [Recovering/Resolving]
  - Chest pain [Recovered/Resolved]
  - Alanine aminotransferase increased [Unknown]
  - Blood creatinine increased [Unknown]
  - Vasospasm [Unknown]
  - Weight increased [Unknown]
  - Weight decreased [Unknown]
  - Joint injury [Unknown]
  - Joint swelling [Recovering/Resolving]
  - Off label use [Unknown]
  - Poor venous access [Recovered/Resolved]
  - Heart rate decreased [Unknown]
  - Blood pressure systolic abnormal [Unknown]
  - Sinusitis [Unknown]
  - Blood cholesterol increased [Not Recovered/Not Resolved]
  - Dysphagia [Unknown]
  - Dizziness [Unknown]
  - Flank pain [Unknown]
  - Cardiac flutter [Recovered/Resolved]
  - Alopecia [Unknown]
  - Poor venous access [Unknown]
  - Diverticulitis [Unknown]
  - Gastritis [Unknown]
  - Oropharyngeal blistering [Unknown]
  - Blood pressure increased [Unknown]
  - Nasopharyngitis [Unknown]
  - Tooth abscess [Recovered/Resolved]
  - Arthralgia [Recovering/Resolving]
  - Paraesthesia [Recovering/Resolving]
  - Oropharyngeal pain [Not Recovered/Not Resolved]
  - Sinusitis [Not Recovered/Not Resolved]
  - Heart rate decreased [Unknown]
  - Blood pressure diastolic abnormal [Unknown]
  - Nausea [Recovered/Resolved]

NARRATIVE: CASE EVENT DATE: 20140806
